FAERS Safety Report 13532634 (Version 2)
Quarter: 2017Q2

REPORT INFORMATION
  Report Type: Spontaneous
  Country: GB (occurrence: GB)
  Receive Date: 20170510
  Receipt Date: 20170628
  Transmission Date: 20170830
  Serious: Yes (Death, Other)
  Sender: FDA-Public Use
  Company Number: GB-TEVA-765891ACC

PATIENT
  Sex: Male

DRUGS (2)
  1. TYGACIL [Suspect]
     Active Substance: TIGECYCLINE
  2. LINEZOLID. [Suspect]
     Active Substance: LINEZOLID

REACTIONS (3)
  - Neutropenia [Fatal]
  - Drug ineffective [Unknown]
  - Haematological malignancy [Fatal]
